FAERS Safety Report 4815336-X (Version None)
Quarter: 2005Q4

REPORT INFORMATION
  Report Type: 
  Country: None (occurrence: None)
  Receive Date: 20051026
  Receipt Date: 20051006
  Transmission Date: 20060501
  Serious: Yes (Other)
  Sender: FDA-Public Use
  Company Number: USA040669098

PATIENT
  Age: 70 Year
  Sex: Female
  Weight: 98 kg

DRUGS (4)
  1. HUMALOG [Suspect]
     Indication: DIABETES MELLITUS
  2. HUMULIN N [Suspect]
     Indication: DIABETES MELLITUS
     Dosage: 16 U AT BEDTIME
  3. HUMULIN R [Suspect]
     Indication: DIABETES MELLITUS
  4. ACTOS [Concomitant]

REACTIONS (7)
  - BLOOD GLUCOSE INCREASED [None]
  - BODY HEIGHT DECREASED [None]
  - CATARACT [None]
  - DEVICE FAILURE [None]
  - EYE HAEMORRHAGE [None]
  - OSTEOPOROSIS [None]
  - VISUAL DISTURBANCE [None]
